FAERS Safety Report 7468950-X (Version None)
Quarter: 2011Q2

REPORT INFORMATION
  Report Type: 
  Country: None (occurrence: None)
  Receive Date: 20110429
  Receipt Date: 20110419
  Transmission Date: 20111010
  Serious: Yes (Other)
  Sender: FDA-Public Use
  Company Number: B0715696A

PATIENT
  Age: 55 Year
  Sex: Male

DRUGS (4)
  1. VALACICLOVIR [Suspect]
     Indication: HERPES VIRUS INFECTION
     Dosage: 2 GRAM (S) / TWICE PER DAY / UNKNOWN
  2. TACROLIMUS [Concomitant]
  3. MYCOPHENOLATE MOFETIL [Suspect]
     Indication: IMMUNOSUPPRESSION
  4. PREDNISONE [Concomitant]

REACTIONS (2)
  - MALAISE [None]
  - AGRANULOCYTOSIS [None]
